FAERS Safety Report 11230593 (Version 2)
Quarter: 2016Q2

REPORT INFORMATION
  Report Type: Spontaneous
  Country: US (occurrence: US)
  Receive Date: 20150701
  Receipt Date: 20160518
  Transmission Date: 20160815
  Serious: No
  Sender: FDA-Public Use
  Company Number: US-PFIZER INC-2015213159

PATIENT
  Age: 42 Year
  Sex: Male
  Weight: 121 kg

DRUGS (3)
  1. DELTASONE [Suspect]
     Active Substance: PREDNISONE
     Dosage: 5 MG, DAILY
     Dates: start: 20141112
  2. DELTASONE [Suspect]
     Active Substance: PREDNISONE
     Dosage: TAKE ONE-HALF TABLET (200 MG TABLET) BY MOUTH ONCE DAILY
     Route: 048
     Dates: start: 20151112
  3. VFEND [Suspect]
     Active Substance: VORICONAZOLE
     Dosage: 200 MG, 2X/DAY, (TAKE 1 TABLET BY MOUTH 2 (TWO) TIMES DAILY)
     Route: 048

REACTIONS (1)
  - Haemoptysis [Unknown]
